FAERS Safety Report 6189081-5 (Version None)
Quarter: 2009Q2

REPORT INFORMATION
  Report Type: 
  Country: None (occurrence: None)
  Receive Date: 20090513
  Receipt Date: 20090508
  Transmission Date: 20091009
  Serious: Yes (Hospitalization)
  Sender: FDA-Public Use
  Company Number: GR-ABBOTT-09P-066-0572197-00

PATIENT
  Age: 46 Year
  Sex: Female

DRUGS (3)
  1. HUMIRA [Suspect]
     Indication: PSORIATIC ARTHROPATHY
     Route: 058
     Dates: start: 20081103, end: 20090102
  2. HUMIRA [Suspect]
     Dates: start: 20090420
  3. LEPUR [Concomitant]
     Indication: DYSLIPIDAEMIA
     Dosage: DAILY
     Route: 048

REACTIONS (4)
  - DYSPHAGIA [None]
  - HERPES ZOSTER [None]
  - INJECTION SITE ERYTHEMA [None]
  - RASH [None]
